FAERS Safety Report 7757080 (Version 10)
Quarter: 2013Q1

REPORT INFORMATION
  Report Type: Report from Study
  Country: BE (occurrence: BE)
  Receive Date: 20110105
  Receipt Date: 20130130
  Transmission Date: 20140127
  Serious: Yes (Hospitalization, Other)
  Sender: FDA-Public Use
  Company Number: PHHO2010BE19702

PATIENT
  Age: 9 Year
  Sex: Male
  Weight: 19.8 kg

DRUGS (6)
  1. ACZ885 [Suspect]
     Indication: JUVENILE IDIOPATHIC ARTHRITIS
     Dosage: 77.2 MG, ONCE/SINGLE
     Dates: start: 20101124
  2. ACZ885 [Suspect]
     Dosage: 79.2 MG, ONCE/SINGLE
     Dates: start: 20101222
  3. NO TREATMENT RECEIVED [Suspect]
     Indication: JUVENILE IDIOPATHIC ARTHRITIS
     Dosage: NO TREATMENT
  4. INDOCID [Suspect]
     Dosage: UNK
     Dates: end: 20101225
  5. MEDROL [Concomitant]
  6. OMEPRAZOLE [Concomitant]
     Dosage: 40 MG, DAILY

REACTIONS (14)
  - Hepatitis [Recovering/Resolving]
  - Hepatic enzyme increased [Recovering/Resolving]
  - Juvenile idiopathic arthritis [Unknown]
  - Injection site reaction [Recovered/Resolved]
  - Injection site erythema [Recovered/Resolved]
  - Injection site swelling [Recovered/Resolved]
  - Injection site pain [Recovered/Resolved]
  - Gastritis [Recovering/Resolving]
  - Abdominal pain upper [Recovering/Resolving]
  - Abdominal pain [Recovering/Resolving]
  - Fatigue [Recovering/Resolving]
  - Malaise [Recovering/Resolving]
  - Inflammation [Recovering/Resolving]
  - Pyrexia [Recovering/Resolving]
